FAERS Safety Report 16005811 (Version 1)
Quarter: 2019Q1

REPORT INFORMATION
  Report Type: Spontaneous
  Country: FR (occurrence: FR)
  Receive Date: 20190226
  Receipt Date: 20190226
  Transmission Date: 20190418
  Serious: Yes (Hospitalization)
  Sender: FDA-Public Use
  Company Number: FR-ASTRAZENECA-2019SE28684

PATIENT
  Age: 56 Year
  Sex: Male

DRUGS (6)
  1. VANCOMYCIN [Suspect]
     Active Substance: VANCOMYCIN
     Route: 042
     Dates: start: 20140307, end: 20140324
  2. CEFTAZIDIME. [Suspect]
     Active Substance: CEFTAZIDIME
     Route: 042
     Dates: start: 20140321, end: 20140326
  3. INEXIUM [Suspect]
     Active Substance: ESOMEPRAZOLE
     Route: 048
     Dates: start: 20140307, end: 20140324
  4. CANCIDAS [Suspect]
     Active Substance: CASPOFUNGIN ACETATE
     Route: 042
     Dates: start: 20140324
  5. ZOVIRAX [Suspect]
     Active Substance: ACYCLOVIR
     Route: 042
     Dates: start: 20140320, end: 20140324
  6. FLAGYL [Suspect]
     Active Substance: METRONIDAZOLE\METRONIDAZOLE HYDROCHLORIDE
     Route: 048
     Dates: start: 20140322

REACTIONS (1)
  - Renal tubular disorder [Unknown]

NARRATIVE: CASE EVENT DATE: 20140326
